FAERS Safety Report 8520650-0 (Version None)
Quarter: 2012Q3

REPORT INFORMATION
  Report Type: 
  Country: None (occurrence: None)
  Receive Date: 20120705
  Receipt Date: 20120622
  Transmission Date: 20120928
  Serious: Yes (Hospitalization)
  Sender: FDA-Public Use
  Company Number: 2012SP035712

PATIENT
  Age: 46 Year
  Sex: Male
  Weight: 79 kg

DRUGS (11)
  1. VIRAFERONPEG [Suspect]
     Indication: HEPATITIS C
     Dosage: 1 MCG/KG;QW
     Dates: start: 20110517
  2. OGAST [Concomitant]
  3. INSULIN [Concomitant]
  4. VICTRELIS [Suspect]
     Indication: HEPATITIS C
     Dosage: 800 MG;TID
     Dates: start: 20110614
  5. PROGRAF [Concomitant]
  6. LOVENOX [Concomitant]
  7. MORPHINE [Concomitant]
  8. CELLCEPT [Concomitant]
  9. ACUPAN [Concomitant]
  10. MEDROL [Concomitant]
  11. COPEGUS [Suspect]
     Indication: HEPATITIS C
     Dosage: 1000 MG;QD;PO
     Route: 048
     Dates: start: 20110517

REACTIONS (1)
  - LIVER TRANSPLANT [None]
